FAERS Safety Report 18765219 (Version 6)
Quarter: 2021Q4

REPORT INFORMATION
  Report Type: Spontaneous
  Country: DE (occurrence: DE)
  Receive Date: 20210120
  Receipt Date: 20211223
  Transmission Date: 20220303
  Serious: Yes (Hospitalization, Other)
  Sender: FDA-Public Use
  Company Number: DE-GILEAD-2021-0513278

PATIENT
  Age: 71 Year
  Sex: Male
  Weight: 100 kg

DRUGS (42)
  1. YESCARTA [Suspect]
     Active Substance: AXICABTAGENE CILOLEUCEL
     Indication: Diffuse large B-cell lymphoma
     Dosage: UNK
     Route: 042
     Dates: start: 20201130, end: 20201130
  2. HEPARIN [Suspect]
     Active Substance: HEPARIN SODIUM
     Indication: Pulmonary embolism
     Dosage: 1200 IU/H
     Route: 042
  3. HEPARIN [Suspect]
     Active Substance: HEPARIN SODIUM
     Dosage: 1200 IU/H
     Route: 042
  4. HEPARIN [Suspect]
     Active Substance: HEPARIN SODIUM
     Dosage: 200 IU/ML, 300 IU/H - 1.5 ML/H
     Route: 042
  5. HEPARIN [Suspect]
     Active Substance: HEPARIN SODIUM
     Dosage: 200 IU/ML, 300 IU/H - 1.5 ML/H
     Route: 042
  6. HEPARIN [Suspect]
     Active Substance: HEPARIN SODIUM
     Dosage: 1200 IU/H
     Route: 042
  7. HEPARIN [Suspect]
     Active Substance: HEPARIN SODIUM
     Dosage: 1200 IU/H
     Route: 042
  8. FLUDARABINE [Concomitant]
     Active Substance: FLUDARABINE PHOSPHATE
     Indication: Bone marrow conditioning regimen
     Dosage: 200 MG, QD
     Route: 048
     Dates: start: 202011
  9. CYCLOPHOSPHAMIDE [Concomitant]
     Active Substance: CYCLOPHOSPHAMIDE
     Indication: Bone marrow conditioning regimen
     Dosage: UNK
     Dates: start: 202011
  10. JONOSTERIL BAS [Concomitant]
     Dosage: 5 ML, Q1HR
     Route: 042
  11. SMOFLIPID [Concomitant]
     Active Substance: FISH OIL\MEDIUM-CHAIN TRIGLYCERIDES\OLIVE OIL\SOYBEAN OIL
     Dosage: 20 %; 250 ML
     Route: 042
  12. ACYCLOVIR [Concomitant]
     Active Substance: ACYCLOVIR
     Dosage: 400 MG
     Route: 048
  13. COTRIMOXAZOLE [Concomitant]
     Active Substance: SULFAMETHOXAZOLE\TRIMETHOPRIM
     Dosage: 960 MG
     Route: 048
  14. LACTULOSE [Concomitant]
     Active Substance: LACTULOSE
     Dosage: 10 G
     Route: 048
  15. VANCOMYCIN [Concomitant]
     Active Substance: VANCOMYCIN
  16. VANCOMYCIN [Concomitant]
     Active Substance: VANCOMYCIN
  17. MEROPENEM [Concomitant]
     Active Substance: MEROPENEM
     Dosage: 1000 MG
     Route: 042
  18. METHYLPREDNISOLONE [Concomitant]
     Active Substance: METHYLPREDNISOLONE
     Dosage: 10 MG
     Route: 042
  19. POTASSIUM [Concomitant]
     Active Substance: POTASSIUM
  20. POTASSIUM [Concomitant]
     Active Substance: POTASSIUM
  21. INSULIN NOS [Concomitant]
     Active Substance: INSULIN NOS
  22. INSULIN NOS [Concomitant]
     Active Substance: INSULIN NOS
  23. URAPIDIL [Concomitant]
     Active Substance: URAPIDIL
  24. URAPIDIL [Concomitant]
     Active Substance: URAPIDIL
  25. CALCIUM [Concomitant]
     Active Substance: CALCIUM
  26. CALCIUM [Concomitant]
     Active Substance: CALCIUM
  27. KEPPRA [Concomitant]
     Active Substance: LEVETIRACETAM
  28. KEPPRA [Concomitant]
     Active Substance: LEVETIRACETAM
  29. PANTOZOL [Concomitant]
     Active Substance: PANTOPRAZOLE SODIUM
  30. PANTOZOL [Concomitant]
     Active Substance: PANTOPRAZOLE SODIUM
  31. AMINO ACIDS\DEXTROSE\ELECTROLYTES NOS [Concomitant]
     Active Substance: AMINO ACIDS\DEXTROSE\ELECTROLYTES NOS
     Dosage: 80 ML, Q1HR
     Route: 042
  32. LEVETIRACETAM [Concomitant]
     Active Substance: LEVETIRACETAM
     Dosage: 500 MG
     Route: 042
  33. PANTOPRAZOLE [Concomitant]
     Active Substance: PANTOPRAZOLE
     Dosage: 40 MG
     Route: 042
  34. FUROSEMIDE [Concomitant]
     Active Substance: FUROSEMIDE
     Dosage: 40 MG
     Route: 042
  35. QUETIAPINE [Concomitant]
     Active Substance: QUETIAPINE
     Dosage: 25 MG
     Route: 048
  36. CHOLECALCIFEROL [Concomitant]
     Active Substance: CHOLECALCIFEROL
     Dosage: 1000 IU
     Route: 048
  37. LEVOTHYROXINE [Concomitant]
     Active Substance: LEVOTHYROXINE
     Indication: Hypothyroidism
     Dosage: 150 UG
     Route: 048
  38. BISOPROLOL [Concomitant]
     Active Substance: BISOPROLOL
     Dosage: 1.25 MG
     Route: 048
  39. MELATONIN [Concomitant]
     Active Substance: MELATONIN
     Dosage: 2 MG
     Route: 048
  40. PIPERACILLIN AND TAZOBACTAM [Concomitant]
     Active Substance: PIPERACILLIN SODIUM\TAZOBACTAM SODIUM
     Dosage: UNK
     Dates: start: 20201127, end: 20201201
  41. CLARITHROMYCIN [Concomitant]
     Active Substance: CLARITHROMYCIN
     Dosage: UNK
     Dates: start: 20201130
  42. CASPOFUNGIN [Concomitant]
     Active Substance: CASPOFUNGIN
     Dosage: UNK
     Dates: start: 20201201, end: 20210112

REACTIONS (17)
  - Shock haemorrhagic [Unknown]
  - Large intestinal ulcer haemorrhage [Unknown]
  - Retroperitoneal haemorrhage [Recovered/Resolved]
  - Urinary tract infection enterococcal [Unknown]
  - Pneumonia klebsiella [Unknown]
  - Thrombocytopenia [Unknown]
  - Acute respiratory failure [Unknown]
  - Immune effector cell-associated neurotoxicity syndrome [Unknown]
  - Acute kidney injury [Unknown]
  - Sepsis [Unknown]
  - Pulmonary embolism [Unknown]
  - Pneumonia aspiration [Unknown]
  - Cytomegalovirus infection reactivation [Unknown]
  - Retroperitoneal haemorrhage [Unknown]
  - Retroperitoneal haematoma [Not Recovered/Not Resolved]
  - Encephalopathy [Unknown]
  - Cytokine release syndrome [Unknown]

NARRATIVE: CASE EVENT DATE: 20201201
